FAERS Safety Report 19740969 (Version 2)
Quarter: 2021Q3

REPORT INFORMATION
  Report Type: Spontaneous
  Country: RU (occurrence: RU)
  Receive Date: 20210824
  Receipt Date: 20210914
  Transmission Date: 20211014
  Serious: Yes (Other)
  Sender: FDA-Public Use
  Company Number: RU-ROCHE-2892744

PATIENT
  Age: 54 Year
  Sex: Male

DRUGS (20)
  1. ATEZOLIZUMAB. [Suspect]
     Active Substance: ATEZOLIZUMAB
     Indication: BLADDER CANCER
     Dosage: 4 CYCLES OF CHEMOTHERAPY WERE ADMINISTERED ACCORDING TO THE GEMCIS REGIMEN IN COMBINATION WITH IMMUN
     Route: 065
     Dates: start: 20201211
  2. CARBOPLATIN. [Suspect]
     Active Substance: CARBOPLATIN
     Dosage: 4 CYCLES OF CHEMOTHERAPY WERE ADMINISTERED ACCORDING TO THE GEMCIS REGIMEN IN COMBINATION WITH IMMUN
     Route: 065
     Dates: start: 20201211
  3. FUROSEMIDE. [Concomitant]
     Active Substance: FUROSEMIDE
  4. SODIUM HEPARIN [Concomitant]
     Active Substance: HEPARIN SODIUM
  5. INSULIN [Concomitant]
     Active Substance: INSULIN NOS
  6. CARBOPLATIN. [Suspect]
     Active Substance: CARBOPLATIN
     Indication: BLADDER CANCER
     Dosage: 2 CYCLES OF CHEMOTHERAPY WERE ADMINISTERED ACCORDING TO THE GP REGIMEN (GEMCITABINE + CARBOPLATIN).
     Route: 065
     Dates: start: 20200416, end: 20200513
  7. AMLODIPINE [Concomitant]
     Active Substance: AMLODIPINE BESYLATE
  8. FOLIC ACID. [Concomitant]
     Active Substance: FOLIC ACID
  9. ENOXAPARIN [Concomitant]
     Active Substance: ENOXAPARIN
  10. LEVOFLOXACIN. [Concomitant]
     Active Substance: LEVOFLOXACIN
  11. GLUCOSE [Concomitant]
     Active Substance: DEXTROSE
  12. KETANOV [Concomitant]
     Active Substance: KETOROLAC TROMETHAMINE
  13. GEMCITABINE. [Suspect]
     Active Substance: GEMCITABINE
     Indication: BLADDER CANCER
     Dosage: 2 CYCLES OF CHEMOTHERAPY WERE ADMINISTERED ACCORDING TO THE GP REGIMEN (GEMCITABINE + CARBOPLATIN).
     Route: 065
     Dates: start: 20200416, end: 20200513
  14. GEMCITABINE. [Suspect]
     Active Substance: GEMCITABINE
     Dosage: 4 CYCLES OF CHEMOTHERAPY WERE ADMINISTERED ACCORDING TO THE GEMCIS REGIMEN IN COMBINATION WITH IMMUN
     Route: 065
     Dates: start: 20201211
  15. ATEZOLIZUMAB. [Suspect]
     Active Substance: ATEZOLIZUMAB
     Dosage: 6 CYCLES OF IMMUNOTHERAPY WITH ATEZOLIZUMAB WERE CARRIED OUT.
     Route: 065
     Dates: start: 20210226, end: 20210702
  16. KALIMATE [Concomitant]
     Active Substance: CALCIUM POLYSTYRENE SULFONATE
  17. INDOMETHACIN. [Concomitant]
     Active Substance: INDOMETHACIN
  18. LIKFERR [Concomitant]
     Route: 042
  19. OMEPRAZOLE. [Concomitant]
     Active Substance: OMEPRAZOLE
  20. ENTEROL (RUSSIA) [Concomitant]

REACTIONS (6)
  - Electrolyte imbalance [Unknown]
  - Iron deficiency anaemia [Unknown]
  - Urinary tract infection [Unknown]
  - Azotaemia [Unknown]
  - Chronic kidney disease [Unknown]
  - Nephrosclerosis [Unknown]
